FAERS Safety Report 9338636 (Version 1)
Quarter: 2013Q2

REPORT INFORMATION
  Report Type: Spontaneous
  Country: US (occurrence: AT)
  Receive Date: 20130610
  Receipt Date: 20130610
  Transmission Date: 20140414
  Serious: Yes (Hospitalization)
  Sender: FDA-Public Use
  Company Number: AT-FRI-1000045786

PATIENT
  Age: 78 Year
  Sex: Male
  Weight: 42 kg

DRUGS (4)
  1. CEFTAROLINE FOSAMIL [Suspect]
     Indication: STAPHYLOCOCCAL INFECTION
     Dosage: 1800 MG
     Route: 042
     Dates: start: 20130423, end: 20130426
  2. SEROQUEL [Concomitant]
     Dosage: 0.5 DF
     Route: 048
  3. EXELON [Concomitant]
  4. MADOPAR ROCHE [Concomitant]
     Dosage: 200 MG/50 MG

REACTIONS (1)
  - Leukopenia [Recovered/Resolved]
